FAERS Safety Report 12782568 (Version 1)
Quarter: 2016Q3

REPORT INFORMATION
  Report Type: Report from Study
  Country: US (occurrence: US)
  Receive Date: 20160927
  Receipt Date: 20160927
  Transmission Date: 20161109
  Serious: Yes (Hospitalization, Other)
  Sender: FDA-Public Use
  Company Number: US-ROCHE-772806

PATIENT
  Age: 76 Year
  Sex: Female
  Weight: 57.8 kg

DRUGS (3)
  1. BEVACIZUMAB [Suspect]
     Active Substance: BEVACIZUMAB
     Indication: ENDOMETRIAL CANCER
     Dosage: TOTAL DOSE:848 MG, FREQUENCY NOT PROVIDED?LAST TREATMENT DATE-24/FEB/2011
     Route: 042
     Dates: start: 20100722, end: 20110224
  2. IXABEPILONE [Suspect]
     Active Substance: IXABEPILONE
     Indication: ENDOMETRIAL CANCER
     Route: 042
     Dates: start: 20100722, end: 20101202
  3. CARBOPLATIN. [Suspect]
     Active Substance: CARBOPLATIN
     Indication: ENDOMETRIAL CANCER
     Dosage: CYCLICAL
     Route: 042
     Dates: start: 20100722, end: 20101202

REACTIONS (15)
  - Abdominal pain [Unknown]
  - Anaemia [Unknown]
  - Neutrophil count decreased [Unknown]
  - Hyperkalaemia [Unknown]
  - Hypertension [Unknown]
  - Lymphocyte count decreased [Unknown]
  - Diarrhoea [Unknown]
  - Acidosis [Unknown]
  - Muscular weakness [Unknown]
  - Hyperglycaemia [Unknown]
  - Hypokalaemia [Unknown]
  - Fatigue [Unknown]
  - Hypoalbuminaemia [Unknown]
  - Enterocolitis infectious [Unknown]
  - White blood cell count decreased [Unknown]

NARRATIVE: CASE EVENT DATE: 20110315
